FAERS Safety Report 9174310 (Version 1)
Quarter: 2013Q1

REPORT INFORMATION
  Report Type: Spontaneous
  Country: BR (occurrence: BR)
  Receive Date: 20130320
  Receipt Date: 20130320
  Transmission Date: 20140127
  Serious: Yes (Other)
  Sender: FDA-Public Use
  Company Number: PHHY2013BR025937

PATIENT
  Sex: Male
  Weight: 70 kg

DRUGS (5)
  1. EXJADE [Suspect]
     Indication: SICKLE CELL ANAEMIA
     Dosage: 500 MG/2 TABLETS, UNK
     Dates: start: 201301
  2. NEXUM [Concomitant]
     Dosage: UNK UKN, UNK
  3. FOLIC ACID [Concomitant]
     Dosage: UNK UKN, UNK
  4. APROZIDE [Concomitant]
     Dosage: UNK UKN, UNK
  5. TRENTAL [Concomitant]
     Dosage: 400 MG, UNK

REACTIONS (3)
  - Bone marrow failure [Unknown]
  - Sickle cell anaemia with crisis [Unknown]
  - Haemoglobin decreased [Unknown]
